FAERS Safety Report 4435655-9 (Version None)
Quarter: 2004Q3

REPORT INFORMATION
  Report Type: 
  Country: None (occurrence: None)
  Receive Date: 20040726
  Receipt Date: 20040521
  Transmission Date: 20050211
  Serious: No
  Sender: FDA-Public Use
  Company Number: USA040568110

PATIENT
  Age: 57 Year
  Sex: Female
  Weight: 59 kg

DRUGS (3)
  1. FORTEO [Suspect]
     Indication: OSTEOPOROSIS
     Dosage: 20 UG/1 DAY
     Dates: start: 20040305
  2. PREMARIN [Concomitant]
  3. NEXIUM [Concomitant]

REACTIONS (6)
  - CHILLS [None]
  - FEELING ABNORMAL [None]
  - OEDEMA MOUTH [None]
  - TOOTH INFECTION [None]
  - TOOTH INJURY [None]
  - WEIGHT DECREASED [None]
